FAERS Safety Report 5877130-0 (Version None)
Quarter: 2008Q3

REPORT INFORMATION
  Report Type: 
  Country: None (occurrence: None)
  Receive Date: 20080910
  Receipt Date: 20080829
  Transmission Date: 20090109
  Serious: Yes (Other)
  Sender: FDA-Public Use
  Company Number: AU-PFIZER INC-2008072754

PATIENT
  Sex: Female

DRUGS (1)
  1. CABASER [Suspect]

REACTIONS (3)
  - ANXIETY [None]
  - HEART RATE IRREGULAR [None]
  - PALPITATIONS [None]
